FAERS Safety Report 14990344 (Version 1)
Quarter: 2018Q2

REPORT INFORMATION
  Report Type: Spontaneous
  Country: US (occurrence: US)
  Receive Date: 20180608
  Receipt Date: 20180608
  Transmission Date: 20180711
  Serious: No
  Sender: FDA-Public Use
  Company Number: US-ROCHE-2090872

PATIENT
  Sex: Female
  Weight: 53.12 kg

DRUGS (1)
  1. ACTEMRA [Suspect]
     Active Substance: TOCILIZUMAB
     Indication: POLYMYALGIA RHEUMATICA
     Route: 058
     Dates: start: 20180228

REACTIONS (3)
  - Myalgia [Recovered/Resolved]
  - Polymyalgia rheumatica [Not Recovered/Not Resolved]
  - Musculoskeletal stiffness [Recovered/Resolved]
